FAERS Safety Report 17957998 (Version 1)
Quarter: 2020Q2

REPORT INFORMATION
  Report Type: Spontaneous
  Country: US (occurrence: US)
  Receive Date: 20200629
  Receipt Date: 20200629
  Transmission Date: 20200714
  Serious: Yes (Other)
  Sender: FDA-Public Use
  Company Number: US-PFIZER INC-2020246351

PATIENT
  Age: 67 Year
  Sex: Female
  Weight: 104.7 kg

DRUGS (2)
  1. SILDENAFIL CITRATE. [Suspect]
     Active Substance: SILDENAFIL CITRATE
     Dosage: UNK
  2. SPIRONOLACTONE. [Suspect]
     Active Substance: SPIRONOLACTONE
     Dosage: UNK

REACTIONS (7)
  - Cardiac failure chronic [Unknown]
  - Jugular vein distension [Unknown]
  - Weight increased [Unknown]
  - Sedation [Unknown]
  - Right ventricular failure [Unknown]
  - Fluid overload [Unknown]
  - Abdominal pain [Unknown]

NARRATIVE: CASE EVENT DATE: 20200624
